FAERS Safety Report 6750172-9 (Version None)
Quarter: 2010Q2

REPORT INFORMATION
  Report Type: 
  Country: None (occurrence: None)
  Receive Date: 20100601
  Receipt Date: 20100520
  Transmission Date: 20101027
  Serious: Yes (Hospitalization, Other)
  Sender: FDA-Public Use
  Company Number: PL-PFIZER INC-2010058419

PATIENT
  Age: 32 Year
  Sex: Female
  Weight: 55 kg

DRUGS (4)
  1. DOSTINEX [Suspect]
     Indication: HYPERPROLACTINAEMIA
     Dosage: 0.5 MG, HALF A TABLET, 1XWEEK
     Route: 048
     Dates: start: 20060101
  2. AZITHROMYCIN [Interacting]
     Indication: NEUROBORRELIOSIS
     Dosage: UNK
  3. ROXITHROMYCIN [Interacting]
     Indication: NEUROBORRELIOSIS
  4. SPIRAMYCIN [Interacting]
     Indication: NEUROBORRELIOSIS

REACTIONS (5)
  - BURNING SENSATION [None]
  - DRUG INTERACTION [None]
  - FORMICATION [None]
  - RASH [None]
  - RAYNAUD'S PHENOMENON [None]
